FAERS Safety Report 17678013 (Version 2)
Quarter: 2020Q2

REPORT INFORMATION
  Report Type: Spontaneous
  Country: FR (occurrence: FR)
  Receive Date: 20200416
  Receipt Date: 20200617
  Transmission Date: 20200714
  Serious: Yes (Death, Other)
  Sender: FDA-Public Use
  Company Number: FR-BRISTOL-MYERS SQUIBB COMPANY-BMS-2020-031632

PATIENT
  Sex: Female
  Weight: 43 kg

DRUGS (3)
  1. OPDIVO [Suspect]
     Active Substance: NIVOLUMAB
     Indication: PRODUCT USED FOR UNKNOWN INDICATION
     Dosage: 3 MILLIGRAM, MONOTHERAPY
     Route: 065
  2. YERVOY [Suspect]
     Active Substance: IPILIMUMAB
     Indication: PROLACTIN-PRODUCING PITUITARY TUMOUR
     Dosage: COMBINATION THERAPY
     Route: 065
  3. OPDIVO [Suspect]
     Active Substance: NIVOLUMAB
     Indication: PROLACTIN-PRODUCING PITUITARY TUMOUR
     Dosage: COMBINATION THERAPY
     Route: 065

REACTIONS (4)
  - Weight decreased [Unknown]
  - Malignant neoplasm progression [Unknown]
  - Intentional product use issue [Unknown]
  - Cardiac arrest [Fatal]
